FAERS Safety Report 6975778-3 (Version None)
Quarter: 2010Q3

REPORT INFORMATION
  Report Type: 
  Country: None (occurrence: None)
  Receive Date: 20100910
  Receipt Date: 20090325
  Transmission Date: 20110219
  Serious: No
  Sender: FDA-Public Use
  Company Number: US-WYE-H08713709

PATIENT
  Sex: Female
  Weight: 59.02 kg

DRUGS (3)
  1. PRISTIQ [Suspect]
     Indication: DEPRESSION
     Route: 048
     Dates: start: 20081001, end: 20090314
  2. PRISTIQ [Suspect]
     Dosage: CUT IN HALF FOR ONE WEEK
     Route: 048
     Dates: start: 20090315, end: 20090322
  3. LORAZEPAM [Concomitant]

REACTIONS (3)
  - BLOOD PRESSURE INCREASED [None]
  - DIZZINESS [None]
  - DRUG WITHDRAWAL SYNDROME [None]
